FAERS Safety Report 21299063 (Version 13)
Quarter: 2024Q2

REPORT INFORMATION
  Report Type: Spontaneous
  Country: US (occurrence: US)
  Receive Date: 20220906
  Receipt Date: 20240516
  Transmission Date: 20240715
  Serious: No
  Sender: FDA-Public Use
  Company Number: US-PFIZER INC-202201114711

PATIENT
  Age: 79 Year
  Sex: Male

DRUGS (3)
  1. ZARONTIN [Suspect]
     Active Substance: ETHOSUXIMIDE
     Indication: Seizure
     Dosage: 3 CAPSULES
  2. ZARONTIN [Suspect]
     Active Substance: ETHOSUXIMIDE
     Dosage: 250 MG, 1X/DAY
  3. ZARONTIN [Suspect]
     Active Substance: ETHOSUXIMIDE
     Dosage: HALF OF ONE

REACTIONS (5)
  - Headache [Unknown]
  - Migraine [Unknown]
  - Blood pressure abnormal [Unknown]
  - Blood glucose decreased [Unknown]
  - Intentional product misuse [Unknown]
